FAERS Safety Report 8015925-8 (Version None)
Quarter: 2011Q4

REPORT INFORMATION
  Report Type: 
  Country: None (occurrence: None)
  Receive Date: 20111230
  Receipt Date: 20111216
  Transmission Date: 20120403
  Serious: Yes (Hospitalization, Disabling, Other)
  Sender: FDA-Public Use
  Company Number: MX-SANOFI-AVENTIS-2011SA082589

PATIENT
  Age: 87 Year
  Sex: Male
  Weight: 69 kg

DRUGS (4)
  1. PRAVASTATIN [Concomitant]
     Route: 048
  2. LANTUS [Suspect]
     Indication: TYPE 2 DIABETES MELLITUS
     Route: 058
     Dates: start: 20050101
  3. COPLAVIX [Concomitant]
     Indication: THROMBOSIS PROPHYLAXIS
     Route: 048
     Dates: start: 20101101
  4. RAMIPRIL [Suspect]
     Route: 048
     Dates: start: 20060101

REACTIONS (5)
  - CEREBROVASCULAR ACCIDENT [None]
  - HEMIPLEGIA [None]
  - HYPERGLYCAEMIA [None]
  - DECUBITUS ULCER [None]
  - HYPOGLYCAEMIA [None]
